FAERS Safety Report 23288662 (Version 1)
Quarter: 2023Q4

REPORT INFORMATION
  Report Type: Spontaneous
  Country: US (occurrence: None)
  Receive Date: 20231211
  Receipt Date: 20231211
  Transmission Date: 20240109
  Serious: Yes (Disabling)
  Sender: FDA-Public Use
  Company Number: None

PATIENT
  Age: 40 Year
  Sex: Female
  Weight: 99.9 kg

DRUGS (5)
  1. CIPROFLOXACIN [Suspect]
     Active Substance: CIPROFLOXACIN
     Indication: Urinary tract infection
     Dosage: OTHER QUANTITY : 1 CAPSULE(S);?FREQUENCY : TWICE A DAY;?
     Route: 048
     Dates: start: 20220909, end: 20220910
  2. EFFEXOR XR [Concomitant]
     Active Substance: VENLAFAXINE HYDROCHLORIDE
  3. LISINOPRIL [Concomitant]
     Active Substance: LISINOPRIL
  4. METFORMIN [Concomitant]
     Active Substance: METFORMIN HYDROCHLORIDE
  5. VITAMINS [Concomitant]
     Active Substance: VITAMINS

REACTIONS (12)
  - Drug ineffective [None]
  - Pathogen resistance [None]
  - Vaginal prolapse [None]
  - Rectal prolapse [None]
  - Hypermobility syndrome [None]
  - Autonomic nervous system imbalance [None]
  - Joint instability [None]
  - Loss of personal independence in daily activities [None]
  - Impaired quality of life [None]
  - Joint dislocation [None]
  - Pain [None]
  - Migraine [None]

NARRATIVE: CASE EVENT DATE: 20220911
